FAERS Safety Report 5312910-1 (Version None)
Quarter: 2007Q2

REPORT INFORMATION
  Report Type: 
  Country: None (occurrence: None)
  Receive Date: 20070430
  Receipt Date: 20070420
  Transmission Date: 20071010
  Serious: Yes (Hospitalization)
  Sender: FDA-Public Use
  Company Number: US-AMGEN-US212928

PATIENT
  Sex: Female
  Weight: 59.5 kg

DRUGS (1)
  1. ENBREL [Suspect]
     Indication: RHEUMATOID ARTHRITIS
     Route: 058
     Dates: start: 20000511

REACTIONS (4)
  - ARRHYTHMIA [None]
  - CARDIAC PACEMAKER INSERTION [None]
  - DEVICE RELATED INFECTION [None]
  - RHEUMATOID ARTHRITIS [None]
